FAERS Safety Report 10063521 (Version 2)
Quarter: 2014Q2

REPORT INFORMATION
  Report Type: Spontaneous
  Country: IT (occurrence: IT)
  Receive Date: 20140407
  Receipt Date: 20140523
  Transmission Date: 20141212
  Serious: Yes (Hospitalization)
  Sender: FDA-Public Use
  Company Number: IT-ELI_LILLY_AND_COMPANY-IT201403010149

PATIENT
  Age: 85 Year
  Sex: Male

DRUGS (2)
  1. HUMALOG LISPRO [Suspect]
     Indication: DIABETES MELLITUS
     Dosage: 26 IU, QD
     Route: 058
     Dates: start: 20130727, end: 20130727
  2. LANTUS [Suspect]
     Indication: DIABETES MELLITUS
     Dosage: 10 IU, QD
     Route: 058
     Dates: start: 20130727, end: 20130727

REACTIONS (4)
  - Confusional state [Recovering/Resolving]
  - Hypoglycaemia [Recovering/Resolving]
  - Wrong drug administered [Recovering/Resolving]
  - Incorrect dose administered [Unknown]
